FAERS Safety Report 25303889 (Version 2)
Quarter: 2025Q2

REPORT INFORMATION
  Report Type: Spontaneous
  Country: EG (occurrence: EG)
  Receive Date: 20250513
  Receipt Date: 20250528
  Transmission Date: 20250717
  Serious: Yes (Life-Threatening, Other)
  Sender: NOVO NORDISK
  Company Number: EG-NOVOPROD-1423596

PATIENT
  Age: 739 Month
  Sex: Male
  Weight: 105 kg

DRUGS (1)
  1. INSULIN HUMAN [Suspect]
     Active Substance: INSULIN HUMAN
     Indication: Type 2 diabetes mellitus
     Dosage: 75 IU, QD (50 IU AM, 25 IU PM)
     Route: 058

REACTIONS (1)
  - Thrombosis [Recovered/Resolved]

NARRATIVE: CASE EVENT DATE: 20240101
